FAERS Safety Report 24450318 (Version 1)
Quarter: 2024Q4

REPORT INFORMATION
  Report Type: Report from Study
  Country: CO (occurrence: CO)
  Receive Date: 20241017
  Receipt Date: 20241017
  Transmission Date: 20250115
  Serious: Yes (Hospitalization)
  Sender: UCB
  Company Number: CO-UCBSA-2024052593

PATIENT
  Age: 69 Year
  Sex: Male

DRUGS (4)
  1. ROTIGOTINE [Suspect]
     Active Substance: ROTIGOTINE
     Indication: Parkinson^s disease
     Dosage: 8 MILLIGRAM, ONCE DAILY (QD)
     Route: 062
     Dates: start: 20170404, end: 20240403
  2. ROTIGOTINE [Suspect]
     Active Substance: ROTIGOTINE
     Indication: Off label use
     Dosage: 12 MILLIGRAM, ONCE DAILY (QD)
     Route: 062
     Dates: start: 20240420
  3. CARBIDOPA AND LEVODOPA [Concomitant]
     Active Substance: CARBIDOPA\LEVODOPA
     Indication: Product used for unknown indication
     Dosage: UNK
  4. AMANTADINE [Concomitant]
     Active Substance: AMANTADINE
     Indication: Product used for unknown indication
     Dosage: UNK

REACTIONS (2)
  - Urinary tract infection [Not Recovered/Not Resolved]
  - Off label use [Unknown]

NARRATIVE: CASE EVENT DATE: 20170404
